FAERS Safety Report 8219848-0 (Version None)
Quarter: 2012Q1

REPORT INFORMATION
  Report Type: 
  Country: None (occurrence: None)
  Receive Date: 20120319
  Receipt Date: 20120314
  Transmission Date: 20120608
  Serious: Yes (Other)
  Sender: FDA-Public Use
  Company Number: AU-PFIZER INC-2012068922

PATIENT

DRUGS (1)
  1. EFFEXOR XR [Suspect]
     Dosage: 600 MG

REACTIONS (1)
  - ELECTROCARDIOGRAM QT PROLONGED [None]
